FAERS Safety Report 21307434 (Version 2)
Quarter: 2022Q4

REPORT INFORMATION
  Report Type: Spontaneous
  Country: US (occurrence: US)
  Receive Date: 20220908
  Receipt Date: 20221019
  Transmission Date: 20230112
  Serious: Yes (Other)
  Sender: FDA-Public Use
  Company Number: US-PFIZER INC-PV202200058480

PATIENT
  Age: 56 Year
  Sex: Male
  Weight: 81.633 kg

DRUGS (1)
  1. SIROLIMUS [Suspect]
     Active Substance: SIROLIMUS
     Dosage: 1 MG, DAILY
     Route: 048

REACTIONS (4)
  - Thrombosis [Unknown]
  - Cardiac failure [Unknown]
  - Neurological symptom [Unknown]
  - Speech disorder [Unknown]
